FAERS Safety Report 14544008 (Version 2)
Quarter: 2018Q1

REPORT INFORMATION
  Report Type: Spontaneous
  Country: US (occurrence: US)
  Receive Date: 20180216
  Receipt Date: 20180222
  Transmission Date: 20180509
  Serious: Yes (Hospitalization)
  Sender: FDA-Public Use
  Company Number: US-PFIZER INC-2018067997

PATIENT
  Age: 22 Year
  Sex: Female

DRUGS (1)
  1. XELJANZ XR [Suspect]
     Active Substance: TOFACITINIB CITRATE
     Dosage: 11 MG, UNK

REACTIONS (4)
  - Condition aggravated [Recovering/Resolving]
  - Pain [Recovering/Resolving]
  - Drug ineffective [Not Recovered/Not Resolved]
  - Gastroenteritis viral [Recovering/Resolving]
